FAERS Safety Report 6061685-X (Version None)
Quarter: 2009Q1

REPORT INFORMATION
  Report Type: 
  Country: None (occurrence: None)
  Receive Date: 20090202
  Receipt Date: 20090120
  Transmission Date: 20090719
  Serious: Yes (Hospitalization)
  Sender: FDA-Public Use
  Company Number: US-GENENTECH-264400

PATIENT
  Sex: Male
  Weight: 63 kg

DRUGS (4)
  1. BLINDED BORTEZOMIB [Suspect]
     Indication: MULTIPLE MYELOMA
     Dosage: 945 MG, Q3W
     Route: 042
     Dates: start: 20080630, end: 20080710
  2. BLINDED BEVACIZUMAB [Suspect]
     Indication: MULTIPLE MYELOMA
     Dosage: 945 MG, Q3W
     Route: 042
     Dates: start: 20080630, end: 20080710
  3. BLINDED PLACEBO [Suspect]
     Indication: MULTIPLE MYELOMA
     Dosage: 945 MG, Q3W
     Route: 042
     Dates: start: 20080630, end: 20080710
  4. VELCADE [Suspect]
     Indication: MULTIPLE MYELOMA
     Dosage: UNK
     Dates: start: 20080630

REACTIONS (1)
  - RENAL FAILURE ACUTE [None]
